FAERS Safety Report 9871464 (Version 1)
Quarter: 2014Q1

REPORT INFORMATION
  Report Type: Spontaneous
  Country: US (occurrence: None)
  Receive Date: 20140204
  Receipt Date: 20140204
  Transmission Date: 20141002
  Serious: Yes (Disabling)
  Sender: FDA-Public Use
  Company Number: None

PATIENT
  Age: 78 Year
  Sex: Female
  Weight: 67.13 kg

DRUGS (9)
  1. PROLIA [Suspect]
     Indication: BONE DENSITY ABNORMAL
     Dates: start: 201303, end: 201303
  2. DIOVAN [Concomitant]
  3. TRIAM [Concomitant]
  4. PREMPRO [Concomitant]
  5. LIPITOR [Concomitant]
  6. VITAMIN D [Concomitant]
  7. CALCIUM [Concomitant]
  8. MAGNESIUM [Concomitant]
  9. MULTI-VITAMIN/MINERAL [Concomitant]

REACTIONS (6)
  - Pain in extremity [None]
  - Pain in extremity [None]
  - Arthralgia [None]
  - Pain in extremity [None]
  - Pain in extremity [None]
  - Trismus [None]
